FAERS Safety Report 6662234-5 (Version None)
Quarter: 2010Q1

REPORT INFORMATION
  Report Type: 
  Country: None (occurrence: None)
  Receive Date: 20100331
  Receipt Date: 20100318
  Transmission Date: 20100710
  Serious: Yes (Other)
  Sender: FDA-Public Use
  Company Number: MW-MYLANLABS-2010S1004644

PATIENT
  Age: 14 Year
  Sex: Male

DRUGS (1)
  1. CYSTAGON [Suspect]
     Indication: CYSTINOSIS
     Route: 048
     Dates: start: 19960101

REACTIONS (1)
  - SYSTEMIC LUPUS ERYTHEMATOSUS [None]
